FAERS Safety Report 9814924 (Version 2)
Quarter: 2014Q1

REPORT INFORMATION
  Report Type: Report from Study
  Country: NO (occurrence: NO)
  Receive Date: 20140113
  Receipt Date: 20140306
  Transmission Date: 20141002
  Serious: Yes (Other)
  Sender: FDA-Public Use
  Company Number: NO-RB-062620-14

PATIENT
  Age: 41 Year
  Sex: Male

DRUGS (7)
  1. SUBOXONE UNSPECIFIED [Suspect]
     Indication: DRUG DEPENDENCE
     Dosage: PATIENT ON SUBOXONE FOR ONE MONTH AT THE TIME THE QUESTIONNAIRE WAS COMPLETED
     Route: 065
  2. SUBOXONE UNSPECIFIED [Suspect]
     Dosage: DOSE DETAILS UNKNOWN. PREVIOUSLY TOOK SUBOXONE NOT PRESCRIBED TO HIM.
     Route: 065
  3. SUBUTEX [Suspect]
     Indication: PRODUCT USED FOR UNKNOWN INDICATION
     Dosage: DOSING DETAILS UNKNOWN
     Route: 065
  4. HEROIN [Suspect]
     Indication: PRODUCT USED FOR UNKNOWN INDICATION
     Dosage: DETAILS UNKNOWN
     Route: 065
  5. TETRAHYDROCANNABINOL (MARIJUANA,HASH) [Suspect]
     Indication: PRODUCT USED FOR UNKNOWN INDICATION
     Dosage: DETAILS UNKNOWN
     Route: 065
  6. BENZODIAZEPINES [Suspect]
     Indication: PRODUCT USED FOR UNKNOWN INDICATION
     Dosage: DETAILS UNKNOWN
     Route: 065
  7. METHADONE [Suspect]
     Indication: DRUG DEPENDENCE
     Dosage: DOSING DETAILS UNKNOWN
     Route: 065

REACTIONS (6)
  - Suicidal ideation [Unknown]
  - Drug abuse [Unknown]
  - Drug dependence [Unknown]
  - Disturbance in social behaviour [Unknown]
  - Hyperhidrosis [Unknown]
  - Substance abuse [Unknown]
